FAERS Safety Report 7636137-3 (Version None)
Quarter: 2011Q3

REPORT INFORMATION
  Report Type: 
  Country: None (occurrence: None)
  Receive Date: 20110719
  Receipt Date: 20110705
  Transmission Date: 20111222
  Serious: Yes (Death)
  Sender: FDA-Public Use
  Company Number: 2011002135

PATIENT
  Age: 57 Year
  Sex: Male
  Weight: 74 kg

DRUGS (3)
  1. ERLOTINIB HYDROCHLORIDE [Suspect]
     Indication: HEPATIC NEOPLASM MALIGNANT
     Dosage: 100 MG/D, ORAL
     Route: 048
     Dates: start: 20110412, end: 20110503
  2. SORAFENIB (SORAFENIB) TABLET [Suspect]
     Indication: HEPATIC NEOPLASM MALIGNANT
     Dosage: 800 MG/D, ORAL, 400 MG/D, ORAL
     Route: 048
     Dates: start: 20110412, end: 20110502
  3. SORAFENIB (SORAFENIB) TABLET [Suspect]
     Indication: HEPATIC NEOPLASM MALIGNANT
     Dosage: 800 MG/D, ORAL, 400 MG/D, ORAL
     Route: 048
     Dates: start: 20110503, end: 20110503

REACTIONS (4)
  - SUDDEN DEATH [None]
  - PULMONARY EMBOLISM [None]
  - ARRHYTHMIA [None]
  - CARDIAC ARREST [None]
